FAERS Safety Report 10410629 (Version 1)
Quarter: 2014Q3

REPORT INFORMATION
  Report Type: Spontaneous
  Country: BR (occurrence: BR)
  Receive Date: 20140826
  Receipt Date: 20140826
  Transmission Date: 20150326
  Serious: Yes (Hospitalization, Other)
  Sender: FDA-Public Use
  Company Number: BR-PFIZER INC-2014236988

PATIENT
  Age: 43 Year
  Sex: Female
  Weight: 78 kg

DRUGS (1)
  1. CELEBRA [Suspect]
     Active Substance: CELECOXIB
     Indication: PAIN
     Dosage: 2 UNITS OF 200MG, DAILY
     Route: 048

REACTIONS (4)
  - Fall [Unknown]
  - Tendon rupture [Unknown]
  - Pain [Unknown]
  - Joint injury [Unknown]

NARRATIVE: CASE EVENT DATE: 2003
